FAERS Safety Report 13915646 (Version 2)
Quarter: 2017Q3

REPORT INFORMATION
  Report Type: Report from Study
  Country: CA (occurrence: CA)
  Receive Date: 20170829
  Receipt Date: 20170905
  Transmission Date: 20171127
  Serious: Yes (Other)
  Sender: FDA-Public Use
  Company Number: PHHY2017CA029054

PATIENT
  Age: 52 Year
  Sex: Female

DRUGS (2)
  1. GILENYA [Suspect]
     Active Substance: FINGOLIMOD HYDROCHLORIDE
     Indication: PRODUCT USED FOR UNKNOWN INDICATION
     Dosage: UNK
     Route: 048
     Dates: start: 20130117
  2. GILENYA [Suspect]
     Active Substance: FINGOLIMOD HYDROCHLORIDE
     Dosage: UNK, QOD (EVERY 2 DAYS)
     Route: 048
     Dates: start: 201703, end: 20170826

REACTIONS (12)
  - Photopsia [Recovered/Resolved]
  - Lymphocyte count decreased [Unknown]
  - Dysgraphia [Unknown]
  - Influenza [Recovering/Resolving]
  - Inappropriate schedule of drug administration [Unknown]
  - Cranial nerve disorder [Unknown]
  - Hair colour changes [Unknown]
  - Visual impairment [Recovered/Resolved]
  - Retinal migraine [Unknown]
  - Vision blurred [Recovered/Resolved]
  - White blood cell count decreased [Unknown]
  - Drug ineffective [Unknown]

NARRATIVE: CASE EVENT DATE: 201612
